FAERS Safety Report 10900257 (Version 4)
Quarter: 2015Q3

REPORT INFORMATION
  Report Type: Report from Study
  Country: GB (occurrence: GB)
  Receive Date: 20150310
  Receipt Date: 20150714
  Transmission Date: 20151125
  Serious: Yes (Disabling)
  Sender: FDA-Public Use
  Company Number: GB-ACCORD-029109

PATIENT
  Age: 74 Year
  Sex: Female

DRUGS (26)
  1. SANDO K [Concomitant]
     Route: 065
     Dates: start: 20131227, end: 20131231
  2. COCODAMOL [Concomitant]
     Active Substance: ACETAMINOPHEN\CODEINE PHOSPHATE
     Indication: PAIN
     Dosage: 30/500 MG
     Route: 065
     Dates: start: 2013
  3. RANITIDINE [Concomitant]
     Active Substance: RANITIDINE\RANITIDINE HYDROCHLORIDE
     Route: 065
     Dates: start: 20131129, end: 20140411
  4. LANSOPRAZOLE. [Concomitant]
     Active Substance: LANSOPRAZOLE
     Route: 065
     Dates: start: 2013
  5. HUMULIN NOS [Concomitant]
     Active Substance: INSULIN HUMAN
     Dosage: 28 UNITS IN THE MORNING
     Route: 065
     Dates: start: 2013
  6. LOPERAMIDE [Concomitant]
     Active Substance: LOPERAMIDE
     Route: 065
     Dates: start: 20131227, end: 20140102
  7. METOCLOPRAMIDE. [Concomitant]
     Active Substance: METOCLOPRAMIDE
     Route: 065
     Dates: start: 20131213, end: 20131218
  8. ATENOLOL/ATENOLOL HYDROCHLORIDE [Concomitant]
     Route: 065
     Dates: start: 2013
  9. MENTHA X PIPERITA [Concomitant]
     Route: 065
     Dates: start: 2013
  10. RAMIPRIL. [Concomitant]
     Active Substance: RAMIPRIL
     Route: 065
     Dates: start: 2013, end: 20140310
  11. CHLORPHENAMINE [Concomitant]
     Active Substance: CHLORPHENIRAMINE MALEATE
     Route: 065
     Dates: start: 20131129, end: 20140411
  12. CYCLIZINE [Concomitant]
     Active Substance: CYCLIZINE
     Dosage: ALSO RECEIVED ON 27-DEC-2013 TO 2-JAN-2014, 10-JAN-2014 TO 24-JAN-2014, 14-FEB-2014 TO 21-FEB-2015
     Route: 065
     Dates: start: 20140328, end: 20140404
  13. PERTUZUMAB [Suspect]
     Active Substance: PERTUZUMAB
     Indication: HER-2 POSITIVE BREAST CANCER
     Dosage: MAINTENANCE DOSE; LAST DOSE PRIOR TO SAE: 13-JAN-2015.
     Route: 042
     Dates: end: 20150113
  14. ROSUVASTATIN/ROSUVASTATIN CALCIUM [Concomitant]
     Route: 065
     Dates: start: 2013
  15. NICORANDIL [Concomitant]
     Active Substance: NICORANDIL
     Route: 065
     Dates: start: 2013
  16. PIRITON [Concomitant]
     Active Substance: CHLORPHENIRAMINE MALEATE
     Route: 065
     Dates: start: 20140724
  17. PACLITAXEL/PACLITAXEL LIPOSOME [Suspect]
     Active Substance: PACLITAXEL
     Indication: HER-2 POSITIVE BREAST CANCER
     Dosage: LAST DOSE PRIOR TO SAE: 28-MAR-2014
     Route: 042
     Dates: start: 20131129
  18. HERCEPTIN [Suspect]
     Active Substance: TRASTUZUMAB
     Indication: HER-2 POSITIVE BREAST CANCER
     Dosage: MAINTENANCE DOSE; LAST DOSE PRIOR TO SAE: 13-JAN-2015
     Route: 042
     Dates: end: 20150113
  19. AMITRIPTYLINE [Concomitant]
     Active Substance: AMITRIPTYLINE
     Route: 065
     Dates: start: 2013
  20. VICTOZA [Concomitant]
     Active Substance: LIRAGLUTIDE
     Dosage: 0.6 UNITS
     Route: 065
     Dates: start: 2013
  21. EURAX [Concomitant]
     Active Substance: CROTAMITON
     Route: 061
     Dates: start: 20140724
  22. GLICLAZIDE [Concomitant]
     Active Substance: GLICLAZIDE
     Dosage: DF DOSAGE FORM
     Route: 065
     Dates: start: 2013
  23. CODEINE [Concomitant]
     Active Substance: CODEINE
     Dosage: 30 MG PRN 8 HOURLY
     Route: 065
     Dates: start: 20131227, end: 20140102
  24. HYDROCORTISONE. [Concomitant]
     Active Substance: HYDROCORTISONE
     Dosage: 1%
     Route: 065
     Dates: start: 20140724
  25. ACETYLSALICYLIC ACID [Concomitant]
     Active Substance: ASPIRIN
     Route: 065
     Dates: start: 2013
  26. COLOFAC [Concomitant]
     Active Substance: MEBEVERINE HYDROCHLORIDE
     Route: 065
     Dates: start: 2013

REACTIONS (1)
  - Crohn^s disease [Not Recovered/Not Resolved]

NARRATIVE: CASE EVENT DATE: 20150116
